FAERS Safety Report 9099143 (Version 2)
Quarter: 2013Q2

REPORT INFORMATION
  Report Type: Spontaneous
  Country: JP (occurrence: JP)
  Receive Date: 20130213
  Receipt Date: 20130416
  Transmission Date: 20140414
  Serious: Yes (Other)
  Sender: FDA-Public Use
  Company Number: JP-ELI_LILLY_AND_COMPANY-JP201302001616

PATIENT
  Age: 37 Year
  Sex: Female

DRUGS (4)
  1. DOBUTAMINE HYDROCHLORIDE [Suspect]
     Dosage: 2.0 ?G/KG, UNK
  2. DOBUTAMINE HYDROCHLORIDE [Suspect]
     Dosage: 1.5 ?G/KG, UNK
  3. DOBUTAMINE HYDROCHLORIDE [Suspect]
     Dosage: 1.0 ?G/KG, UNK
  4. DOBUTAMINE HYDROCHLORIDE [Suspect]
     Dosage: 0.5 ?G/KG, UNK

REACTIONS (5)
  - Eosinophilic myocarditis [Recovering/Resolving]
  - Eosinophilia [Recovering/Resolving]
  - Infusion site erythema [None]
  - Infusion site pruritus [None]
  - Infusion site phlebitis [None]
